FAERS Safety Report 8199234-2 (Version None)
Quarter: 2012Q1

REPORT INFORMATION
  Report Type: 
  Country: None (occurrence: None)
  Receive Date: 20120309
  Receipt Date: 20120227
  Transmission Date: 20120608
  Serious: Yes (Other)
  Sender: FDA-Public Use
  Company Number: US-ELI_LILLY_AND_COMPANY-US201202008358

PATIENT
  Sex: Female

DRUGS (7)
  1. HUMULIN 70/30 [Suspect]
     Dosage: 30 U, EACH MORNING
  2. HUMULIN 70/30 [Suspect]
     Indication: TYPE 2 DIABETES MELLITUS
     Dosage: 30 U, EACH MORNING
  3. HUMULIN 70/30 [Suspect]
     Dosage: 32 U, EACH EVENING
  4. HUMULIN 70/30 [Suspect]
     Dosage: 32 U, EACH EVENING
  5. CHANTIX [Concomitant]
     Dosage: UNK
  6. HUMULIN 70/30 [Suspect]
     Dosage: UNK UNK, PRN
  7. HUMULIN 70/30 [Suspect]
     Dosage: UNK UNK, PRN

REACTIONS (9)
  - NICOTINE DEPENDENCE [None]
  - ARTHRALGIA [None]
  - INSOMNIA [None]
  - NECK PAIN [None]
  - BLOOD GLUCOSE FLUCTUATION [None]
  - BLOOD GLUCOSE INCREASED [None]
  - DEPRESSED MOOD [None]
  - BLOOD GLUCOSE DECREASED [None]
  - NEOPLASM [None]
